FAERS Safety Report 10029264 (Version 3)
Quarter: 2014Q2

REPORT INFORMATION
  Report Type: Spontaneous
  Country: JP (occurrence: JP)
  Receive Date: 20140321
  Receipt Date: 20140428
  Transmission Date: 20141212
  Serious: Yes (Death, Other)
  Sender: FDA-Public Use
  Company Number: PHHY2014JP033312

PATIENT
  Age: 59 Year
  Sex: Male

DRUGS (3)
  1. GLIVEC [Suspect]
     Indication: MALIGNANT MELANOMA
     Route: 048
  2. DACARBAZINE [Suspect]
     Indication: MALIGNANT MELANOMA
     Dosage: 0.1 %, UNK
  3. INTERFERON BETA [Suspect]

REACTIONS (5)
  - General physical health deterioration [Fatal]
  - Pneumonia [Fatal]
  - Malignant melanoma [Unknown]
  - Malignant neoplasm progression [Unknown]
  - Drug ineffective [Unknown]
